FAERS Safety Report 10984178 (Version 1)
Quarter: 2015Q2

REPORT INFORMATION
  Report Type: Spontaneous
  Country: GB (occurrence: GB)
  Receive Date: 20150403
  Receipt Date: 20150403
  Transmission Date: 20150821
  Serious: Yes (Death)
  Sender: FDA-Public Use
  Company Number: GB-B.I. PHARMACEUTICALS,INC./RIDGEFIELD-2015-BI-17488UK

PATIENT
  Age: 90 Year

DRUGS (1)
  1. PRADAXA [Suspect]
     Active Substance: DABIGATRAN ETEXILATE MESYLATE
     Indication: PRODUCT USED FOR UNKNOWN INDICATION
     Dosage: 220 MG
     Route: 065

REACTIONS (5)
  - Gastrointestinal haemorrhage [Unknown]
  - Abscess [Unknown]
  - Coagulopathy [Unknown]
  - Sepsis [Fatal]
  - Anticoagulation drug level abnormal [Unknown]
